FAERS Safety Report 15802065 (Version 1)
Quarter: 2019Q1

REPORT INFORMATION
  Report Type: Spontaneous
  Country: US (occurrence: US)
  Receive Date: 20190102
  Receipt Date: 20190102
  Transmission Date: 20190417
  Serious: No
  Sender: FDA-Public Use
  Company Number: None

PATIENT

DRUGS (2)
  1. AMITRIPTYLINE [Suspect]
     Active Substance: AMITRIPTYLINE
  2. CLONIDINE. [Suspect]
     Active Substance: CLONIDINE

REACTIONS (3)
  - Drug interaction [None]
  - Product prescribing error [None]
  - Blood pressure increased [None]
